FAERS Safety Report 11444935 (Version 2)
Quarter: 2015Q4

REPORT INFORMATION
  Report Type: Report from Study
  Country: BR (occurrence: BR)
  Receive Date: 20150902
  Receipt Date: 20151005
  Transmission Date: 20160304
  Serious: Yes (Hospitalization)
  Sender: FDA-Public Use
  Company Number: PHHY2015BR104675

PATIENT
  Sex: Male
  Weight: 79 kg

DRUGS (2)
  1. ONBREZ BREEZHALER [Suspect]
     Active Substance: INDACATEROL
     Indication: DYSPNOEA
     Dosage: 1 DF, QD
     Route: 055
  2. FLUTICAPS [Concomitant]
     Indication: DYSPNOEA
     Dosage: 1 DF, QD (1 INHALATION A DAY)
     Route: 055

REACTIONS (4)
  - Cardiac disorder [Recovering/Resolving]
  - Swelling [Recovered/Resolved]
  - Dyspnoea [Recovering/Resolving]
  - Blood pressure increased [Recovering/Resolving]
